FAERS Safety Report 7688677-9 (Version None)
Quarter: 2011Q3

REPORT INFORMATION
  Report Type: 
  Country: None (occurrence: None)
  Receive Date: 20110817
  Receipt Date: 20110808
  Transmission Date: 20111222
  Serious: Yes (Life-Threatening)
  Sender: FDA-Public Use
  Company Number: US-GLAXOSMITHKLINE-A0924390A

PATIENT
  Age: 67 Year
  Sex: Female

DRUGS (11)
  1. TRIAMTERENE AND HYDROCHLOROTHIAZIDE [Concomitant]
  2. GABAPENTIN [Concomitant]
  3. EFFEXOR [Concomitant]
  4. LOVAZA [Suspect]
     Indication: BLOOD TRIGLYCERIDES INCREASED
     Dosage: 2CAP TWICE PER DAY
     Route: 048
     Dates: start: 20101206
  5. FLUTICASONE PROPIONATE [Concomitant]
  6. TRAZODONE HCL [Concomitant]
  7. METFORMIN HCL [Concomitant]
  8. LORA TAB [Concomitant]
  9. CARVEDILOL [Concomitant]
  10. RED YEAST RICE [Concomitant]
  11. TOPIRAMATE [Concomitant]

REACTIONS (11)
  - PRODUCT ODOUR ABNORMAL [None]
  - ABDOMINAL DISCOMFORT [None]
  - NAUSEA [None]
  - TRANSMISSION OF AN INFECTIOUS AGENT VIA A MEDICINAL PRODUCT [None]
  - DYSGEUSIA [None]
  - SNEEZING [None]
  - PRODUCT QUALITY ISSUE [None]
  - MYOCARDIAL INFARCTION [None]
  - BURNING SENSATION [None]
  - ERUCTATION [None]
  - DYSPEPSIA [None]
